FAERS Safety Report 10514604 (Version 2)
Quarter: 2014Q4

REPORT INFORMATION
  Report Type: Report from Study
  Country: US (occurrence: US)
  Receive Date: 20141013
  Receipt Date: 20141013
  Transmission Date: 20150528
  Serious: Yes (Hospitalization)
  Sender: FDA-Public Use
  Company Number: US-EISAI MEDICAL RESEARCH-AP356-00613-CLI-US

PATIENT
  Age: 56 Year
  Sex: Male
  Weight: 89.7 kg

DRUGS (3)
  1. PHENTERMINE [Suspect]
     Active Substance: PHENTERMINE
     Indication: OBESITY
     Route: 048
     Dates: start: 20140104, end: 20140326
  2. LISINOPRIL. [Concomitant]
     Active Substance: LISINOPRIL
  3. LORCASERIN HYDROCHLORIDE [Suspect]
     Active Substance: LORCASERIN HYDROCHLORIDE
     Indication: OBESITY
     Route: 048
     Dates: start: 20140104, end: 20140326

REACTIONS (1)
  - Atrial fibrillation [Recovered/Resolved]

NARRATIVE: CASE EVENT DATE: 20140326
